FAERS Safety Report 19406624 (Version 1)
Quarter: 2021Q2

REPORT INFORMATION
  Report Type: Report from Study
  Country: JP (occurrence: JP)
  Receive Date: 20210611
  Receipt Date: 20210611
  Transmission Date: 20210717
  Serious: Yes (Death, Other)
  Sender: FDA-Public Use
  Company Number: JP-KYOWAKIRIN-2021BKK009387

PATIENT

DRUGS (1)
  1. POTELIGEO [Suspect]
     Active Substance: MOGAMULIZUMAB-KPKC
     Indication: ADULT T-CELL LYMPHOMA/LEUKAEMIA
     Dosage: 1 MG/KG, ONCE PER WEEK FOR 8 WEEKS
     Route: 042

REACTIONS (4)
  - Cytomegalovirus infection [Fatal]
  - Viral infection [Unknown]
  - Lymphopenia [Unknown]
  - Stevens-Johnson syndrome [Unknown]
